FAERS Safety Report 16070625 (Version 3)
Quarter: 2019Q4

REPORT INFORMATION
  Report Type: Spontaneous
  Country: CN (occurrence: CN)
  Receive Date: 20190314
  Receipt Date: 20191107
  Transmission Date: 20200122
  Serious: Yes (Hospitalization)
  Sender: FDA-Public Use
  Company Number: CN-ASTRAZENECA-2019SE38803

PATIENT
  Age: 77 Year
  Sex: Female

DRUGS (4)
  1. ASMETON [Suspect]
     Active Substance: AMINOPHYLLINE\CHLORPHENIRAMINE MALEATE\METHOXYPHENAMINE HYDROCHLORIDE\NOSCAPINE
     Route: 065
     Dates: end: 20190223
  2. NEXIUM [Suspect]
     Active Substance: ESOMEPRAZOLE MAGNESIUM
     Dosage: 20.0MG UNKNOWN
     Route: 048
     Dates: end: 20190223
  3. GASMOTIN [Suspect]
     Active Substance: MOSAPRIDE CITRATE
     Route: 065
     Dates: end: 20190223
  4. COMPOUND DIGESTIVE ENZYME [Suspect]
     Active Substance: DIETARY SUPPLEMENT
     Dosage: GUANGDONG XINGHAO PHARMACEUTICAL CO. LTD, 2S TID PO
     Route: 065
     Dates: end: 20190223

REACTIONS (3)
  - Pruritus [Recovering/Resolving]
  - Rash papular [Recovering/Resolving]
  - Drug eruption [Recovering/Resolving]

NARRATIVE: CASE EVENT DATE: 20190223
